FAERS Safety Report 14252157 (Version 1)
Quarter: 2017Q4

REPORT INFORMATION
  Report Type: Spontaneous
  Country: US (occurrence: US)
  Receive Date: 20171205
  Receipt Date: 20171205
  Transmission Date: 20180321
  Serious: No
  Sender: FDA-Public Use
  Company Number: US-BAYER-2017-234878

PATIENT
  Age: 85 Year
  Sex: Female
  Weight: 69 kg

DRUGS (1)
  1. MIRALAX [Suspect]
     Active Substance: POLYETHYLENE GLYCOL 3350
     Indication: GASTROINTESTINAL DISORDER
     Dosage: 17 G, UNK
     Route: 048

REACTIONS (3)
  - Drug ineffective [Unknown]
  - Drug effect incomplete [None]
  - Peripheral swelling [Unknown]

NARRATIVE: CASE EVENT DATE: 201711
